FAERS Safety Report 6924620-5 (Version None)
Quarter: 2010Q3

REPORT INFORMATION
  Report Type: 
  Country: None (occurrence: None)
  Receive Date: 20100815
  Receipt Date: 20100520
  Transmission Date: 20110219
  Serious: No
  Sender: FDA-Public Use
  Company Number: A0860629A

PATIENT
  Age: 19 Year
  Sex: Male

DRUGS (4)
  1. TREXIMET [Suspect]
     Indication: CONSTIPATION
     Route: 048
     Dates: start: 20100520
  2. TRIFLUOPERAZINE [Concomitant]
     Route: 048
  3. LAXATIVES [Concomitant]
  4. MIROLAX [Concomitant]

REACTIONS (2)
  - CONSTIPATION [None]
  - DIARRHOEA [None]
